FAERS Safety Report 7604149-1 (Version None)
Quarter: 2011Q3

REPORT INFORMATION
  Report Type: 
  Country: None (occurrence: None)
  Receive Date: 20110712
  Receipt Date: 20110712
  Transmission Date: 20111222
  Serious: Yes (Life-Threatening, Hospitalization, Disabling, Other)
  Sender: FDA-Public Use
  Company Number: None

PATIENT
  Age: 77 Year
  Sex: Female
  Weight: 54.4316 kg

DRUGS (2)
  1. ALCOHOL SWABS UNIVERSAL PRODUCT MARKETING, INC [Suspect]
     Indication: WOUND TREATMENT
     Dates: start: 20090101, end: 20110301
  2. ALCOHOL SWABS UNIVERSAL PRODUCT MARKETING, INC [Suspect]
     Indication: LACERATION
     Dates: start: 20090101, end: 20110301

REACTIONS (2)
  - TRANSMISSION OF AN INFECTIOUS AGENT VIA A MEDICINAL PRODUCT [None]
  - MENINGITIS BACTERIAL [None]
